FAERS Safety Report 12147924 (Version 2)
Quarter: 2016Q1

REPORT INFORMATION
  Report Type: Spontaneous
  Country: FR (occurrence: FR)
  Receive Date: 20160304
  Receipt Date: 20160318
  Transmission Date: 20160526
  Serious: Yes (Congenital Anomaly, Other)
  Sender: FDA-Public Use
  Company Number: FR-UCBSA-2016007334

PATIENT

DRUGS (1)
  1. KEPPRA [Suspect]
     Active Substance: LEVETIRACETAM
     Indication: EPILEPSY
     Dosage: 500 MG, 2X/DAY (BID)
     Route: 064
     Dates: start: 2014, end: 20140822

REACTIONS (7)
  - Foetal exposure during pregnancy [Unknown]
  - Spine malformation [Not Recovered/Not Resolved]
  - Umbilical cord abnormality [Not Recovered/Not Resolved]
  - Umbilical artery hypoplasia [Not Recovered/Not Resolved]
  - Congenital bladder anomaly [Not Recovered/Not Resolved]
  - Multiple congenital abnormalities [Not Recovered/Not Resolved]
  - Limb deformity [Not Recovered/Not Resolved]

NARRATIVE: CASE EVENT DATE: 2014
